FAERS Safety Report 5524928-4 (Version None)
Quarter: 2007Q4

REPORT INFORMATION
  Report Type: 
  Country: None (occurrence: None)
  Receive Date: 20071119
  Receipt Date: 20071105
  Transmission Date: 20080405
  Serious: Yes (Hospitalization)
  Sender: FDA-Public Use
  Company Number: 144-20785-07051072

PATIENT
  Age: 78 Year
  Sex: Female

DRUGS (9)
  1. THALIDOMIDE [Suspect]
     Indication: MULTIPLE MYELOMA
     Dosage: 100 MG, 2 IN 1 D, ORAL; 100 MG, ORAL
     Route: 048
     Dates: start: 20070322, end: 20070502
  2. THALIDOMIDE [Suspect]
     Indication: MULTIPLE MYELOMA
     Dosage: 100 MG, 2 IN 1 D, ORAL; 100 MG, ORAL
     Route: 048
     Dates: start: 20070521, end: 20070608
  3. VELCADE [Suspect]
     Indication: MULTIPLE MYELOMA
     Dosage: 2 MG, INTRAVENOUS; 2 MG, INTRAVENOUS
     Route: 042
     Dates: start: 20070322, end: 20070419
  4. VELCADE [Suspect]
     Indication: MULTIPLE MYELOMA
     Dosage: 2 MG, INTRAVENOUS; 2 MG, INTRAVENOUS
     Route: 042
     Dates: start: 20070521, end: 20070611
  5. PREDNISONE [Suspect]
     Indication: MULTIPLE MYELOMA
     Dosage: 100 MG; 200 MG, QD, ORAL
     Route: 048
     Dates: start: 20070322, end: 20070325
  6. HYDROCHLOROTHIAZIDE [Concomitant]
  7. DILTIAZEM [Concomitant]
  8. ACENOCOUMAROL             (ACENOCOUMAROL) [Concomitant]
  9. DIPYRONE TAB [Concomitant]

REACTIONS (2)
  - BRONCHOSPASM [None]
  - ECZEMA [None]
